FAERS Safety Report 5449558-4 (Version None)
Quarter: 2007Q3

REPORT INFORMATION
  Report Type: 
  Country: None (occurrence: None)
  Receive Date: 20070907
  Receipt Date: 20070830
  Transmission Date: 20080115
  Serious: Yes (Hospitalization, Other)
  Sender: FDA-Public Use
  Company Number: S06-USA-04078-01

PATIENT
  Age: 81 Year
  Sex: Female

DRUGS (15)
  1. THYROID TAB [Suspect]
     Indication: HYPOTHYROIDISM
     Dosage: 120 MG QD PO
     Route: 048
     Dates: start: 20070825, end: 20070825
  2. THYROID TAB [Suspect]
     Indication: THYROIDECTOMY
     Dosage: 120 MG QD PO
     Route: 048
     Dates: start: 20070825, end: 20070825
  3. THYROID TAB [Suspect]
     Indication: HYPOTHYROIDISM
     Dosage: 60 MG QD PO
     Route: 048
     Dates: start: 20070827
  4. THYROID TAB [Suspect]
     Indication: THYROIDECTOMY
     Dosage: 60 MG QD PO
     Route: 048
     Dates: start: 20070827
  5. THYROID TAB [Suspect]
     Indication: HYPOTHYROIDISM
     Dosage: 90 MG QD PO
     Route: 048
     Dates: start: 20070826, end: 20070826
  6. THYROID TAB [Suspect]
     Indication: THYROIDECTOMY
     Dosage: 90 MG QD PO
     Route: 048
     Dates: start: 20070826, end: 20070826
  7. THYROID TAB [Suspect]
     Indication: HYPOTHYROIDISM
     Dosage: 90 MG QD PO
     Route: 048
     Dates: start: 19760101, end: 20061004
  8. THYROID TAB [Suspect]
     Indication: THYROIDECTOMY
     Dosage: 90 MG QD PO
     Route: 048
     Dates: start: 19760101, end: 20061004
  9. THYROID TAB [Suspect]
     Indication: HYPOTHYROIDISM
     Dosage: 90 MG QD PO
     Route: 048
     Dates: start: 20061006, end: 20070824
  10. THYROID TAB [Suspect]
     Indication: THYROIDECTOMY
     Dosage: 90 MG QD PO
     Route: 048
     Dates: start: 20061006, end: 20070824
  11. ATENOLOL [Concomitant]
  12. ATACAND [Concomitant]
  13. FLOVENT [Concomitant]
  14. NASACORT [Concomitant]
  15. LABETALOL HCL [Concomitant]

REACTIONS (9)
  - ASTHENIA [None]
  - BLOOD PRESSURE INCREASED [None]
  - DIARRHOEA [None]
  - EPINEPHRINE INCREASED [None]
  - HYPERHIDROSIS [None]
  - HYPERTHYROIDISM [None]
  - MUSCULOSKELETAL PAIN [None]
  - PHAEOCHROMOCYTOMA [None]
  - TREMOR [None]
